FAERS Safety Report 8769172 (Version 1)
Quarter: 2012Q4

REPORT INFORMATION
  Report Type: 
  Country: US (occurrence: US)
  Receive Date: 20120905
  Receipt Date: 20120905
  Transmission Date: 20130627
  Serious: Yes (Other)
  Sender: FDA-Public Use
  Company Number: US-ASTRAZENECA-2012SE64757

PATIENT
  Age: 80 Year
  Sex: Female

DRUGS (3)
  1. CRESTOR [Suspect]
     Route: 048
  2. AVASTIN [Concomitant]
  3. LUSITANIA [Concomitant]
     Indication: OPHTHALMOLOGIC TREATMENT

REACTIONS (1)
  - Blindness unilateral [Unknown]
